FAERS Safety Report 16351437 (Version 1)
Quarter: 2019Q3

REPORT INFORMATION
  Report Type: Spontaneous
  Country: US (occurrence: US)
  Receive Date: 20190523
  Receipt Date: 20190523
  Transmission Date: 20191004
  Serious: Yes (Disabling, Other)
  Sender: FDA-Public Use
  Company Number: None

PATIENT
  Age: 44 Year
  Sex: Female
  Weight: 84.6 kg

DRUGS (2)
  1. NUVARING [Suspect]
     Active Substance: ETHINYL ESTRADIOL\ETONOGESTREL
     Indication: UTERINE ATROPHY
     Dosage: ?          QUANTITY:1 1;OTHER FREQUENCY:1 RING EVERY 3 WKS;?
     Route: 067
     Dates: start: 20190416, end: 20190417
  2. LISINIPRIL HCTZ [Concomitant]

REACTIONS (9)
  - Dyspnoea [None]
  - Fungal infection [None]
  - Peripheral swelling [None]
  - Restless legs syndrome [None]
  - Chest discomfort [None]
  - Muscle spasms [None]
  - Rash generalised [None]
  - Erythema [None]
  - Depression [None]

NARRATIVE: CASE EVENT DATE: 20190417
